FAERS Safety Report 6361449-3 (Version None)
Quarter: 2009Q3

REPORT INFORMATION
  Report Type: 
  Country: None (occurrence: None)
  Receive Date: 20090918
  Receipt Date: 20090908
  Transmission Date: 20100115
  Serious: Yes (Hospitalization)
  Sender: FDA-Public Use
  Company Number: FR-ELI_LILLY_AND_COMPANY-FR200909001607

PATIENT
  Age: 53 Year
  Sex: Male

DRUGS (2)
  1. ALIMTA [Suspect]
     Dosage: 500 MG, UNKNOWN
     Route: 042
     Dates: start: 20090625, end: 20090703
  2. CARBOPLATIN [Concomitant]
     Dosage: UNK, UNKNOWN
     Route: 042
     Dates: start: 20090625, end: 20090703

REACTIONS (1)
  - PROTEINURIA [None]
